FAERS Safety Report 17901998 (Version 1)
Quarter: 2020Q2

REPORT INFORMATION
  Report Type: Spontaneous
  Country: CN (occurrence: CN)
  Receive Date: 20200616
  Receipt Date: 20200616
  Transmission Date: 20200714
  Serious: Yes (Other)
  Sender: FDA-Public Use
  Company Number: CN-MYLANLABS-2020M1056943

PATIENT
  Age: 71 Year
  Sex: Female
  Weight: 65 kg

DRUGS (2)
  1. FONDAPARINUX [Suspect]
     Active Substance: FONDAPARINUX
     Indication: ANTICOAGULANT THERAPY
     Dosage: 2.5 MILLIGRAM, QD
     Route: 058
     Dates: start: 20200603, end: 20200604
  2. FONDAPARINUX [Suspect]
     Active Substance: FONDAPARINUX
     Indication: CEREBROVASCULAR ACCIDENT
     Dosage: 1.25 MILLIGRAM, QD
     Route: 058
     Dates: start: 20200529

REACTIONS (4)
  - Micturition urgency [Recovering/Resolving]
  - Dysuria [Recovering/Resolving]
  - Urethral haemorrhage [Recovering/Resolving]
  - Haematuria [Recovering/Resolving]

NARRATIVE: CASE EVENT DATE: 20200531
